FAERS Safety Report 23714067 (Version 1)
Quarter: 2024Q2

REPORT INFORMATION
  Report Type: Spontaneous
  Country: US (occurrence: US)
  Receive Date: 20240405
  Receipt Date: 20240405
  Transmission Date: 20240715
  Serious: No
  Sender: FDA-Public Use
  Company Number: US-002147023-NVSC2024US072819

PATIENT
  Sex: Female

DRUGS (11)
  1. MYFORTIC [Suspect]
     Active Substance: MYCOPHENOLATE SODIUM
     Indication: Renal transplant
     Dosage: 180 MG, BID
     Route: 048
     Dates: start: 20230629, end: 20230816
  2. FLUOXETINE [Concomitant]
     Active Substance: FLUOXETINE HYDROCHLORIDE
     Indication: Anxiety
     Dosage: 20 MG, PRN
     Route: 065
     Dates: start: 20230725
  3. TACROLIMUS [Concomitant]
     Active Substance: TACROLIMUS
     Indication: Autoimmune disorder
     Dosage: 6 MG PER DAY
     Route: 065
     Dates: start: 20210425
  4. AMITRIPTYLINE [Concomitant]
     Active Substance: AMITRIPTYLINE
     Indication: Anxiety
     Dosage: 50 MG, QD
     Route: 065
     Dates: start: 20210307
  5. PREDNISONE [Concomitant]
     Active Substance: PREDNISONE
     Indication: Immune system disorder
     Dosage: 5 MG, QD
     Route: 048
     Dates: start: 20210425
  6. AMLODIPINE [Concomitant]
     Active Substance: AMLODIPINE BESYLATE
     Indication: Hypertension
     Dosage: 2.5 MG, QD
     Route: 065
     Dates: start: 2021
  7. ROCALTROL [Concomitant]
     Active Substance: CALCITRIOL
     Indication: Mineral supplementation
     Dosage: 0.5 IU, TIW
     Route: 065
     Dates: start: 2021
  8. ASPIRIN [Concomitant]
     Active Substance: ASPIRIN
     Indication: Pre-eclampsia
     Dosage: 162 UG, QD
     Route: 048
     Dates: start: 20231228
  9. CEPHALEXIN [Concomitant]
     Active Substance: CEPHALEXIN
     Indication: Urinary tract infection
     Dosage: 500 MG, QD
     Route: 048
     Dates: start: 20240119
  10. PEPCID [Concomitant]
     Active Substance: FAMOTIDINE
     Indication: Gastrooesophageal reflux disease
     Dosage: 20 MG, QD
     Route: 065
     Dates: start: 20230301, end: 20240208
  11. VITAMIN D NOS [Concomitant]
     Active Substance: VITAMIN D NOS
     Indication: Vitamin D decreased
     Dosage: 500 UG (2000 UT)
     Route: 065

REACTIONS (2)
  - Gastrooesophageal reflux disease [Unknown]
  - Maternal exposure during pregnancy [Unknown]

NARRATIVE: CASE EVENT DATE: 20240208
